FAERS Safety Report 8384674-9 (Version None)
Quarter: 2012Q2

REPORT INFORMATION
  Report Type: 
  Country: None (occurrence: None)
  Receive Date: 20120524
  Receipt Date: 20120514
  Transmission Date: 20120825
  Serious: Yes (Hospitalization)
  Sender: FDA-Public Use
  Company Number: DE-ELI_LILLY_AND_COMPANY-DE201205004374

PATIENT
  Age: 77 Year
  Sex: Female

DRUGS (7)
  1. FORTEO [Suspect]
     Indication: OSTEOPOROSIS
     Dosage: UNK, QD
     Route: 058
     Dates: start: 20101220
  2. PREDNISOLONE [Concomitant]
  3. FUROSEMIDE [Concomitant]
  4. CALCIUM [Concomitant]
  5. VITAMIN D [Concomitant]
  6. GLIMEPIRID [Concomitant]
  7. ANALGESICS [Concomitant]

REACTIONS (3)
  - FALL [None]
  - SWELLING [None]
  - UPPER LIMB FRACTURE [None]
